FAERS Safety Report 23836787 (Version 1)
Quarter: 2024Q2

REPORT INFORMATION
  Report Type: Spontaneous
  Country: CN (occurrence: CN)
  Receive Date: 20240509
  Receipt Date: 20240509
  Transmission Date: 20240716
  Serious: Yes (Hospitalization)
  Sender: FDA-Public Use
  Company Number: CN-FreseniusKabi-FK202406883

PATIENT
  Age: 40 Year
  Sex: Male
  Weight: 72 kg

DRUGS (1)
  1. KABIVEN [Suspect]
     Active Substance: ALANINE\ARGININE\ASPARTIC ACID\CALCIUM CHLORIDE\DEXTROSE MONOHYDRATE\GLUTAMIC ACID\GLYCINE\HISTIDINE
     Indication: Nutritional supplementation
     Dosage: FORM OF ADMIN - INJECTION
     Route: 041
     Dates: start: 20240423, end: 20240424

REACTIONS (2)
  - Palpitations [Recovering/Resolving]
  - Nausea [Recovering/Resolving]

NARRATIVE: CASE EVENT DATE: 20240424
